FAERS Safety Report 24432566 (Version 1)
Quarter: 2024Q4

REPORT INFORMATION
  Report Type: Other
  Country: RS (occurrence: RS)
  Receive Date: 20241014
  Receipt Date: 20241014
  Transmission Date: 20250115
  Serious: Yes (Other)
  Sender: ANI
  Company Number: RS-ANIPHARMA-012504

PATIENT
  Age: 3 Year
  Sex: Female

DRUGS (3)
  1. DIPYRIDAMOLE [Suspect]
     Active Substance: DIPYRIDAMOLE
     Indication: Antiplatelet therapy
  2. ASPIRIN [Concomitant]
     Active Substance: ASPIRIN
     Indication: Antiplatelet therapy
  3. WARFARIN [Concomitant]
     Active Substance: WARFARIN
     Indication: Anticoagulant therapy

REACTIONS (1)
  - Subdural haematoma [Unknown]
